FAERS Safety Report 10042156 (Version 1)
Quarter: 2014Q1

REPORT INFORMATION
  Report Type: Spontaneous
  Country: US (occurrence: US)
  Receive Date: 20140327
  Receipt Date: 20140327
  Transmission Date: 20141002
  Serious: No
  Sender: FDA-Public Use
  Company Number: US-TEVA-471680USA

PATIENT
  Age: 40 Year
  Sex: Female
  Weight: 76.27 kg

DRUGS (3)
  1. PARAGARD 380A [Suspect]
     Indication: CONTRACEPTION
     Route: 015
     Dates: start: 20140213, end: 20140325
  2. ZYRTEC [Concomitant]
     Indication: MULTIPLE ALLERGIES
  3. MELATONIN [Concomitant]
     Indication: INSOMNIA

REACTIONS (1)
  - Device expulsion [Recovered/Resolved]
